FAERS Safety Report 6916870-9 (Version None)
Quarter: 2010Q3

REPORT INFORMATION
  Report Type: 
  Country: None (occurrence: None)
  Receive Date: 20100810
  Receipt Date: 20080519
  Transmission Date: 20110219
  Serious: No
  Sender: FDA-Public Use
  Company Number: US-PFIZER INC-2008043909

PATIENT
  Sex: Female
  Weight: 68.2 kg

DRUGS (3)
  1. ACCUPRIL [Suspect]
     Indication: HYPERTENSION
     Route: 048
     Dates: end: 20080101
  2. CALCIUM CHANNEL BLOCKERS [Concomitant]
  3. LIPITOR [Concomitant]

REACTIONS (3)
  - BLOOD PRESSURE INADEQUATELY CONTROLLED [None]
  - CHROMATURIA [None]
  - WEIGHT INCREASED [None]
